FAERS Safety Report 12346207 (Version 11)
Quarter: 2018Q2

REPORT INFORMATION
  Report Type: Spontaneous
  Country: US (occurrence: US)
  Receive Date: 20160509
  Receipt Date: 20180612
  Transmission Date: 20180711
  Serious: Yes (Hospitalization, Other)
  Sender: FDA-Public Use
  Company Number: US-PFIZER INC-2016246053

PATIENT
  Age: 79 Year
  Sex: Female
  Weight: 51 kg

DRUGS (28)
  1. PREDNISONE. [Concomitant]
     Active Substance: PREDNISONE
     Indication: RHEUMATOID ARTHRITIS
     Dosage: 4.0 MG, 1X/DAY
     Dates: start: 20111020
  2. PREDNISONE. [Concomitant]
     Active Substance: PREDNISONE
     Dosage: 2 MG, DAILY
     Dates: start: 201607
  3. WARFARIN [Concomitant]
     Active Substance: WARFARIN
     Indication: COAGULOPATHY
     Dosage: 2.5 MG, 1X/DAY
     Route: 048
     Dates: start: 201109
  4. SYNTHROID [Concomitant]
     Active Substance: LEVOTHYROXINE SODIUM
     Indication: THYROID DISORDER
     Dosage: 88 UG, 1X/DAY
     Dates: start: 20120324
  5. FOLIC ACID. [Concomitant]
     Active Substance: FOLIC ACID
     Indication: RHEUMATOID ARTHRITIS
     Dosage: 400 UG, UNK
     Dates: start: 20091101
  6. COUMADIN [Concomitant]
     Active Substance: WARFARIN SODIUM
     Indication: ANTICOAGULANT THERAPY
     Dosage: 2.5 MG, 1X/DAY
     Dates: start: 20110917
  7. BORON [Concomitant]
     Active Substance: BORON
     Dosage: 2 MG, DAILY
  8. LEVOTHYROXINE. [Concomitant]
     Active Substance: LEVOTHYROXINE
     Indication: THYROID DISORDER
     Dosage: 88 UG, DAILY
     Dates: start: 201203
  9. XELJANZ [Suspect]
     Active Substance: TOFACITINIB CITRATE
     Indication: RHEUMATOID ARTHRITIS
     Dosage: 5 MG, TWICE A DAY
     Dates: start: 20160401
  10. VITAMIN D3 [Concomitant]
     Active Substance: CHOLECALCIFEROL
     Dosage: 2000 IU, DAILY
  11. ALLOPURINOL. [Concomitant]
     Active Substance: ALLOPURINOL
     Indication: BLOOD URIC ACID ABNORMAL
     Dosage: 100 MG, 1X/DAY
     Dates: start: 20120531
  12. WARFARIN [Concomitant]
     Active Substance: WARFARIN
     Indication: ATRIAL FIBRILLATION
  13. LOPRESSOR [Concomitant]
     Active Substance: METOPROLOL TARTRATE
     Indication: BLOOD PRESSURE ABNORMAL
     Dosage: 50 MG, 2X/DAY
     Dates: start: 20120320
  14. VITAMIN C [Concomitant]
     Active Substance: ASCORBIC ACID
     Dosage: 500 MG, DAILY
  15. FISH OIL [Concomitant]
     Active Substance: FISH OIL
     Dosage: 1200 MG, DAILY
  16. METOPROLOL. [Concomitant]
     Active Substance: METOPROLOL
     Indication: HYPERTENSION
  17. XELJANZ [Suspect]
     Active Substance: TOFACITINIB CITRATE
     Dosage: 5 MG, TWICE PER DAY (1 PILL IN THE MORNING AND 1 PILL IN THE AFTERNOON)
     Route: 048
     Dates: start: 201604, end: 201802
  18. XELJANZ [Suspect]
     Active Substance: TOFACITINIB CITRATE
     Dosage: 5 MG, TWICE PER DAY (1 PILL IN THE MORNING AND 1 PILL IN THE AFTERNOON)
     Route: 048
  19. CALCIUM [Concomitant]
     Active Substance: CALCIUM
     Dosage: 500 MG, 1X/DAY
  20. METOPROLOL. [Concomitant]
     Active Substance: METOPROLOL
     Indication: BLOOD PRESSURE MEASUREMENT
     Dosage: 50 MG, 2X/DAY
     Route: 048
     Dates: start: 201203
  21. NORCO [Concomitant]
     Active Substance: ACETAMINOPHEN\HYDROCODONE BITARTRATE
     Indication: PAIN
     Dosage: UNK, AS NEEDED (HYDROCODONE: 5MG; ACETAMINOPHEN: 325 MG; 2/DAY MAX)
  22. DIGOXIN. [Concomitant]
     Active Substance: DIGOXIN
     Indication: ARRHYTHMIA
     Dosage: 125 UG, 1X/DAY
     Dates: start: 20111211
  23. DIGOXIN. [Concomitant]
     Active Substance: DIGOXIN
     Indication: ATRIAL FIBRILLATION
     Dosage: 125 UG, DAILY
     Route: 048
     Dates: start: 201112
  24. SYNTHROID [Concomitant]
     Active Substance: LEVOTHYROXINE SODIUM
     Dosage: 100 UG, 1X/DAY
     Route: 048
  25. PREDNISONE. [Concomitant]
     Active Substance: PREDNISONE
     Dosage: 1 MG, 1X/DAY
     Route: 048
  26. PROLIA [Concomitant]
     Active Substance: DENOSUMAB
     Indication: RHEUMATOID ARTHRITIS
     Dosage: UNK (INJECTION TWICE PER YEAR)
     Dates: start: 20151217
  27. MAGNESIUM [Concomitant]
     Active Substance: MAGNESIUM
     Dosage: 250 MG, 1X/DAY
  28. ONE A DAY WOMEN^S [Concomitant]
     Active Substance: MINERALS\VITAMINS
     Dosage: UNK

REACTIONS (5)
  - Fall [Not Recovered/Not Resolved]
  - Diarrhoea [Recovered/Resolved]
  - Fracture [Not Recovered/Not Resolved]
  - Constipation [Recovered/Resolved]
  - Herpes zoster [Recovering/Resolving]

NARRATIVE: CASE EVENT DATE: 20160423
